FAERS Safety Report 13284833 (Version 1)
Quarter: 2017Q1

REPORT INFORMATION
  Report Type: Spontaneous
  Country: US (occurrence: US)
  Receive Date: 20170301
  Receipt Date: 20170301
  Transmission Date: 20170428
  Serious: Yes (Death)
  Sender: FDA-Public Use
  Company Number: None

PATIENT

DRUGS (1)
  1. ALECENSA [Suspect]
     Active Substance: ALECTINIB HYDROCHLORIDE
     Indication: NEOPLASM MALIGNANT
     Dosage: 150MG ORAL 2 CAPS TWICE DAILY?
     Route: 048
     Dates: start: 20160307, end: 20170228

REACTIONS (1)
  - Death [None]

NARRATIVE: CASE EVENT DATE: 20170228
